FAERS Safety Report 25874226 (Version 2)
Quarter: 2025Q4

REPORT INFORMATION
  Report Type: Spontaneous
  Country: US (occurrence: US)
  Receive Date: 20251002
  Receipt Date: 20251118
  Transmission Date: 20260117
  Serious: No
  Sender: SANOFI AVENTIS
  Company Number: US-SA-2025SA293248

PATIENT
  Sex: Female

DRUGS (3)
  1. KEVZARA [Suspect]
     Active Substance: SARILUMAB
     Indication: Polymyalgia rheumatica
     Dosage: 200 MG, QOW
     Route: 058
  2. OMEGA 3 6 9 COMPLEX [Concomitant]
     Dosage: UNK
  3. VITAMIN C [Concomitant]
     Active Substance: ASCORBIC ACID
     Dosage: UNK

REACTIONS (5)
  - Injection site pain [Unknown]
  - Injection site rash [Unknown]
  - Injection site swelling [Unknown]
  - Skin reaction [Unknown]
  - Oropharyngeal discomfort [Unknown]
